FAERS Safety Report 17083123 (Version 1)
Quarter: 2019Q4

REPORT INFORMATION
  Report Type: Spontaneous
  Country: CA (occurrence: CA)
  Receive Date: 20191127
  Receipt Date: 20191127
  Transmission Date: 20200122
  Serious: Yes (Hospitalization)
  Sender: FDA-Public Use
  Company Number: CA-PFIZER INC-2019512736

PATIENT
  Sex: Female

DRUGS (6)
  1. MONTELUKAST SODIUM. [Concomitant]
     Active Substance: MONTELUKAST SODIUM
     Dosage: UNK
  2. GEMCITABINE HYDROCHLORIDE. [Suspect]
     Active Substance: GEMCITABINE HYDROCHLORIDE
     Indication: OVARIAN CANCER
     Dosage: UNK
  3. TYLENOL [Concomitant]
     Active Substance: ACETAMINOPHEN
     Dosage: 650 MG, UNK
     Route: 048
  4. SIMVASTATIN. [Suspect]
     Active Substance: SIMVASTATIN
     Indication: OVARIAN CANCER
     Dosage: 863 MG,(1 EVERY 3 WEEK )
     Route: 042
  5. CANNABIS SATIVA [Concomitant]
     Active Substance: CANNABIS SATIVA FLOWERING TOP
     Dosage: UNK
  6. DIPHENHYDRAMINE. [Concomitant]
     Active Substance: DIPHENHYDRAMINE
     Dosage: 50 MG, UNK
     Route: 048

REACTIONS (9)
  - Upper respiratory tract infection [Recovering/Resolving]
  - Eye pain [Recovering/Resolving]
  - Intra-abdominal fluid collection [Recovering/Resolving]
  - Dry eye [Recovering/Resolving]
  - Photophobia [Recovering/Resolving]
  - Arthralgia [Recovering/Resolving]
  - Malaise [Recovering/Resolving]
  - Blood pressure increased [Recovering/Resolving]
  - Epistaxis [Recovering/Resolving]
